FAERS Safety Report 9712700 (Version 2)
Quarter: 2013Q4

REPORT INFORMATION
  Report Type: Spontaneous
  Country: US (occurrence: US)
  Receive Date: 20131126
  Receipt Date: 20131126
  Transmission Date: 20140711
  Serious: No
  Sender: FDA-Public Use
  Company Number: US-BRISTOL-MYERS SQUIBB COMPANY-18905430

PATIENT
  Age: 52 Year
  Sex: Male

DRUGS (2)
  1. BYDUREON [Suspect]
     Indication: TYPE 2 DIABETES MELLITUS
     Dosage: 5-6 INJECTIONS
     Route: 058
     Dates: start: 20130314, end: 20130514
  2. METFORMIN [Concomitant]

REACTIONS (1)
  - Injection site abscess [Not Recovered/Not Resolved]
